FAERS Safety Report 7284120-2 (Version None)
Quarter: 2011Q1

REPORT INFORMATION
  Report Type: 
  Country: None (occurrence: None)
  Receive Date: 20110209
  Receipt Date: 20110202
  Transmission Date: 20110831
  Serious: Yes (Death, Hospitalization)
  Sender: FDA-Public Use
  Company Number: PHHY2011BR08459

PATIENT
  Age: 73 Year
  Sex: Female
  Weight: 50 kg

DRUGS (4)
  1. AVASTIN [Concomitant]
     Indication: BONE PAIN
     Route: 048
  2. METHADONE HYDROCHLORIDE [Concomitant]
     Indication: BONE PAIN
  3. MORPHINE [Concomitant]
     Indication: PAIN
  4. ZOMETA [Suspect]
     Indication: METASTASES TO BONE
     Dosage: 4 MG, QMO
     Route: 042
     Dates: start: 20100801

REACTIONS (3)
  - NEOPLASM MALIGNANT [None]
  - MALAISE [None]
  - COMA [None]
